FAERS Safety Report 18232917 (Version 1)
Quarter: 2020Q3

REPORT INFORMATION
  Report Type: Spontaneous
  Country: CA (occurrence: CA)
  Receive Date: 20200904
  Receipt Date: 20200904
  Transmission Date: 20201103
  Serious: Yes (Hospitalization)
  Sender: FDA-Public Use
  Company Number: CA-TEVA-2020-CA-1822445

PATIENT
  Age: 35 Year
  Sex: Female

DRUGS (1)
  1. TADALAFIL. [Suspect]
     Active Substance: TADALAFIL
     Indication: PRODUCT USED FOR UNKNOWN INDICATION
     Route: 065

REACTIONS (5)
  - Foetal growth restriction [Unknown]
  - Exposure during pregnancy [Unknown]
  - Dyspnoea [Unknown]
  - Caesarean section [Unknown]
  - Product use issue [Unknown]
